FAERS Safety Report 7988497-1 (Version None)
Quarter: 2011Q4

REPORT INFORMATION
  Report Type: 
  Country: None (occurrence: None)
  Receive Date: 20111216
  Receipt Date: 20111207
  Transmission Date: 20120403
  Serious: Yes (Other)
  Sender: FDA-Public Use
  Company Number: US-ASTRAZENECA-2011SE74128

PATIENT
  Age: 46 Year
  Sex: Male
  Weight: 50.8 kg

DRUGS (6)
  1. MULTI-VITAMINS [Concomitant]
  2. FOLIC ACID [Concomitant]
  3. VITAMIN B1 TAB [Concomitant]
  4. SEROQUEL [Suspect]
     Indication: BIPOLAR DISORDER
     Route: 048
  5. CITALOPRAM [Concomitant]
  6. STOOL SOFTENER [Concomitant]

REACTIONS (4)
  - BRAIN INJURY [None]
  - BRAIN OEDEMA [None]
  - LIVER DISORDER [None]
  - FALL [None]
